FAERS Safety Report 21514968 (Version 1)
Quarter: 2022Q4

REPORT INFORMATION
  Report Type: Report from Study
  Country: US (occurrence: US)
  Receive Date: 20221027
  Receipt Date: 20221027
  Transmission Date: 20230112
  Serious: Yes (Other)
  Sender: FDA-Public Use
  Company Number: US-ABBVIE-4155320

PATIENT
  Sex: Male

DRUGS (1)
  1. VENETOCLAX [Suspect]
     Active Substance: VENETOCLAX
     Indication: Myelodysplastic syndrome
     Route: 048

REACTIONS (6)
  - Transfusion [Unknown]
  - Full blood count decreased [Unknown]
  - Off label use [Unknown]
  - Malaise [Unknown]
  - Platelet transfusion [Unknown]
  - Platelet count decreased [Unknown]
